FAERS Safety Report 6396651-8 (Version None)
Quarter: 2009Q4

REPORT INFORMATION
  Report Type: 
  Country: None (occurrence: None)
  Receive Date: 20091012
  Receipt Date: 20090930
  Transmission Date: 20100525
  Serious: Yes (Hospitalization)
  Sender: FDA-Public Use
  Company Number: DE-ELI_LILLY_AND_COMPANY-DE200910000090

PATIENT
  Weight: 69 kg

DRUGS (13)
  1. PEMETREXED [Suspect]
     Indication: NON-SMALL CELL LUNG CANCER
     Dosage: 500 MG/M2, ON D1 EVERY 21 DAYS
     Route: 042
     Dates: start: 20090924
  2. CETUXIMAB [Suspect]
     Indication: NON-SMALL CELL LUNG CANCER
     Dosage: 400 MG/M2, ON D1 CYCLE 1
     Route: 042
     Dates: start: 20090924
  3. CISPLATIN [Suspect]
     Indication: NON-SMALL CELL LUNG CANCER
     Dosage: 75 MG/M2, ON D1 EVERY 21 DAYS
     Route: 042
     Dates: start: 20090924
  4. FOLIC ACID [Concomitant]
     Indication: PROPHYLAXIS
     Dates: start: 20090914
  5. VIT B12 [Concomitant]
     Indication: PROPHYLAXIS
     Dates: start: 20090921
  6. CORTICOSTEROIDS [Concomitant]
     Indication: PROPHYLAXIS
     Dates: start: 20090923
  7. ANTIHISTAMINES [Concomitant]
     Indication: PROPHYLAXIS
     Dates: start: 20090924
  8. RAMIPRIL [Concomitant]
     Indication: HYPERTENSION
     Dates: start: 20090101
  9. SIMVASTATIN [Concomitant]
     Indication: HYPERLIPIDAEMIA
     Dates: start: 20090101
  10. JURNISTA [Concomitant]
     Indication: PAIN
     Dates: start: 20090924
  11. NOVALGIN [Concomitant]
     Indication: PAIN
     Dates: start: 20090924
  12. CLEXANE [Concomitant]
     Indication: THROMBOSIS
     Dates: start: 20090916
  13. ARANESP [Concomitant]
     Indication: ANAEMIA
     Dates: start: 20090924, end: 20090924

REACTIONS (1)
  - GENERAL PHYSICAL HEALTH DETERIORATION [None]
